FAERS Safety Report 9225057 (Version 1)
Quarter: 2013Q1

REPORT INFORMATION
  Report Type: Spontaneous
  Country: US (occurrence: None)
  Receive Date: 20120912
  Receipt Date: 20120912
  Transmission Date: 20140127
  Serious: No
  Sender: FDA-Public Use
  Company Number: 2012SP022357

PATIENT
  Age: 39 Year
  Sex: Female

DRUGS (1)
  1. VICTRELIS [Suspect]
     Indication: PRODUCT USED FOR UNKNOWN INDICATION
     Dates: start: 20111225

REACTIONS (3)
  - Blood alkaline phosphatase increased [None]
  - Haematocrit decreased [None]
  - Haemoglobin decreased [None]
